FAERS Safety Report 13943500 (Version 1)
Quarter: 2017Q3

REPORT INFORMATION
  Report Type: Spontaneous
  Country: DE (occurrence: DE)
  Receive Date: 20170907
  Receipt Date: 20170907
  Transmission Date: 20171128
  Serious: Yes (Other)
  Sender: FDA-Public Use
  Company Number: DE-ALSI-201700286

PATIENT
  Age: 76 Year
  Sex: Male

DRUGS (1)
  1. SAUERSTOFF MEDICAL 100% (V/V) OXYGEN [Suspect]
     Active Substance: OXYGEN
     Indication: OXYGEN THERAPY
     Route: 055

REACTIONS (3)
  - Oxygen saturation decreased [Recovered/Resolved]
  - Product quality issue [Recovered/Resolved]
  - Accidental underdose [Recovered/Resolved]

NARRATIVE: CASE EVENT DATE: 20170829
